FAERS Safety Report 5677026-3 (Version None)
Quarter: 2008Q1

REPORT INFORMATION
  Report Type: 
  Country: None (occurrence: None)
  Receive Date: 20080318
  Receipt Date: 20080304
  Transmission Date: 20080703
  Serious: Yes (Other)
  Sender: FDA-Public Use
  Company Number: 08-000371

PATIENT
  Sex: Male

DRUGS (1)
  1. TACLONEX [Suspect]
     Dosage: TOPICAL
     Route: 061

REACTIONS (1)
  - DYSPNOEA [None]
